FAERS Safety Report 15215890 (Version 1)
Quarter: 2018Q3

REPORT INFORMATION
  Report Type: Spontaneous
  Country: ES (occurrence: ES)
  Receive Date: 20180730
  Receipt Date: 20180730
  Transmission Date: 20181010
  Serious: Yes (Death, Hospitalization)
  Sender: FDA-Public Use
  Company Number: ES-ANIPHARMA-2018-ES-000072

PATIENT
  Age: 83 Year
  Sex: Female

DRUGS (3)
  1. EUTIROX [Concomitant]
     Active Substance: LEVOTHYROXINE SODIUM
     Dosage: 1 TABLET DAILY
     Route: 065
     Dates: start: 20141022
  2. CANDESARTAN CILEXETIL. [Suspect]
     Active Substance: CANDESARTAN CILEXETIL
     Indication: HYPERTENSION
     Dosage: 16 MILLIGRAMS, 24?EVERY HOURS, 16MG, 1?0?0
     Route: 048
     Dates: start: 20161004, end: 20170719
  3. SIMVASTATIN. [Concomitant]
     Active Substance: SIMVASTATIN
     Dosage: 10MG DAY
     Route: 048
     Dates: start: 20150302

REACTIONS (2)
  - Renal vasculitis [Fatal]
  - Death [Fatal]

NARRATIVE: CASE EVENT DATE: 20170719
